FAERS Safety Report 8535956-9 (Version None)
Quarter: 2012Q3

REPORT INFORMATION
  Report Type: 
  Country: None (occurrence: None)
  Receive Date: 20120725
  Receipt Date: 20120709
  Transmission Date: 20120928
  Serious: Yes (Life-Threatening, Hospitalization, Other)
  Sender: FDA-Public Use
  Company Number: FR-GENZYME-CLOF-1002223

PATIENT
  Sex: Female
  Weight: 77 kg

DRUGS (7)
  1. CYTARABINE [Suspect]
     Indication: ACUTE MYELOID LEUKAEMIA
     Dosage: 1825 MG, UNK
     Route: 042
     Dates: start: 20120625, end: 20120629
  2. PROCALCITONIN [Concomitant]
     Indication: PRODUCT USED FOR UNKNOWN INDICATION
     Dosage: 32.3 UNK, UNK
     Route: 065
  3. LACOSAMIDE [Concomitant]
     Indication: PRODUCT USED FOR UNKNOWN INDICATION
     Dosage: 2 TAB
     Route: 048
  4. CLOFARABINE [Suspect]
     Indication: ACUTE MYELOID LEUKAEMIA
     Dosage: 54.5 MG, UNK
     Route: 042
     Dates: start: 20120626, end: 20120630
  5. FILGRASTIM [Suspect]
     Indication: PRODUCT USED FOR UNKNOWN INDICATION
     Dosage: 385 MG, UNK
     Route: 042
     Dates: start: 20120625
  6. NORADRENALIN [Concomitant]
     Indication: BLOOD PRESSURE ABNORMAL
     Dosage: UNK
     Route: 065
  7. PLATELETS, CONCENTRATED [Concomitant]
     Indication: PRODUCT USED FOR UNKNOWN INDICATION
     Dosage: UNK
     Route: 065
     Dates: start: 20120101

REACTIONS (17)
  - BACTERIAL INFECTION [None]
  - HUMAN HERPESVIRUS 6 INFECTION [None]
  - ENCEPHALITIS CYTOMEGALOVIRUS [None]
  - DYSARTHRIA [None]
  - DECREASED VENTRICULAR PRELOAD [None]
  - APHASIA [None]
  - CYTOMEGALOVIRUS INFECTION [None]
  - ESCHERICHIA BACTERAEMIA [None]
  - CONFUSIONAL STATE [None]
  - NERVOUS SYSTEM DISORDER [None]
  - THOUGHT BLOCKING [None]
  - PELVIC FLUID COLLECTION [None]
  - OVARIAN CYST [None]
  - CONVULSION [None]
  - HYPERTHERMIA [None]
  - ENTEROBACTER INFECTION [None]
  - ECHOLALIA [None]
